FAERS Safety Report 5343340-4 (Version None)
Quarter: 2007Q2

REPORT INFORMATION
  Report Type: 
  Country: None (occurrence: None)
  Receive Date: 20070501
  Receipt Date: 20070130
  Transmission Date: 20071010
  Serious: No
  Sender: FDA-Public Use
  Company Number: 200710876US

PATIENT
  Sex: Female

DRUGS (1)
  1. KETEK [Suspect]
     Indication: BRONCHITIS
     Dosage: QD PO
     Route: 048
     Dates: start: 20060909

REACTIONS (5)
  - DIARRHOEA [None]
  - NAUSEA [None]
  - NERVOUSNESS [None]
  - PRURITUS [None]
  - RASH [None]
